FAERS Safety Report 17265689 (Version 7)
Quarter: 2022Q4

REPORT INFORMATION
  Report Type: Spontaneous
  Country: BR (occurrence: BR)
  Receive Date: 20200114
  Receipt Date: 20221016
  Transmission Date: 20230113
  Serious: Yes (Other)
  Sender: FDA-Public Use
  Company Number: BR-PFIZER INC-2019515987

PATIENT
  Age: 64 Year
  Sex: Female
  Weight: 61 kg

DRUGS (8)
  1. ENBREL [Suspect]
     Active Substance: ETANERCEPT
     Indication: Rheumatoid arthritis
     Dosage: 50 MG, 1X/WEEK
     Route: 065
     Dates: start: 201905, end: 20200101
  2. PREDNISONE [Concomitant]
     Active Substance: PREDNISONE
     Indication: Rheumatoid arthritis
     Dosage: UNK
  3. FOLIC ACID [Concomitant]
     Active Substance: FOLIC ACID
     Indication: Rheumatoid arthritis
     Dosage: USES ON SATURDAYS AND SUNDAYS
  4. METHOTREXATE [Concomitant]
     Active Substance: METHOTREXATE
     Indication: Rheumatoid arthritis
     Dosage: USES ON FRIDAYS, BEFORE 10 TABLETS, DECREASED FOR 8 AND GONE FOR 6 WHEN SHE STARTED TO USE ENBREL
  5. ENTECAVIR [Concomitant]
     Active Substance: ENTECAVIR
     Dosage: UNK
     Dates: start: 201905
  6. LEFLUNOMIDE [Concomitant]
     Active Substance: LEFLUNOMIDE
     Dosage: UNK
     Dates: start: 201905
  7. CALCIUM [Concomitant]
     Active Substance: CALCIUM
     Dosage: UNK
     Dates: start: 2014
  8. RISEDRONATE SODIUM [Concomitant]
     Active Substance: RISEDRONATE SODIUM
     Indication: Osteoarthritis
     Dosage: UNK
     Dates: start: 2014

REACTIONS (11)
  - Device delivery system issue [Unknown]
  - Drug dose omission by device [Unknown]
  - Product storage error [Unknown]
  - Product packaging issue [Unknown]
  - Poor quality device used [Unknown]
  - Product dispensing error [Unknown]
  - Pain [Recovered/Resolved]
  - Weight increased [Recovered/Resolved]
  - Gastric infection [Not Recovered/Not Resolved]
  - Tuberculosis [Recovered/Resolved]
  - Hepatitis B [Not Recovered/Not Resolved]

NARRATIVE: CASE EVENT DATE: 20190101
